FAERS Safety Report 4861860-3 (Version None)
Quarter: 2005Q4

REPORT INFORMATION
  Report Type: 
  Country: None (occurrence: None)
  Receive Date: 20051130
  Receipt Date: 20041013
  Transmission Date: 20060501
  Serious: Yes (Other)
  Sender: FDA-Public Use
  Company Number: 2004227974US

PATIENT
  Age: 60 Year
  Sex: Male

DRUGS (7)
  1. ZYVOX [Suspect]
     Dosage: 600 MG, BID
     Dates: start: 20040701
  2. SOLUTIONS FOR PARENTERAL NUTRITION () [Suspect]
  3. DIFLUCAN (FLUCONAZOLE) [Concomitant]
  4. METOPROLOL [Concomitant]
  5. COZAAR [Concomitant]
  6. PERCOCET [Concomitant]
  7. ZOFRAN [Concomitant]

REACTIONS (4)
  - ALANINE AMINOTRANSFERASE INCREASED [None]
  - ASPARTATE AMINOTRANSFERASE INCREASED [None]
  - BLOOD ALKALINE PHOSPHATASE INCREASED [None]
  - BLOOD BILIRUBIN INCREASED [None]
